FAERS Safety Report 10732616 (Version 1)
Quarter: 2015Q1

REPORT INFORMATION
  Report Type: Spontaneous
  Country: US (occurrence: None)
  Receive Date: 20150120
  Receipt Date: 20150120
  Transmission Date: 20150721
  Serious: Yes (Other)
  Sender: FDA-Public Use
  Company Number: US-H14001-15-00069

PATIENT
  Sex: Female

DRUGS (2)
  1. MOVEMENT DISORDER AND/OR PAIN PRESCRIPTION MEDICATION (OTHER THERAPEUTIC PRODUCTS) [Concomitant]
     Active Substance: UNSPECIFIED INGREDIENT
  2. INFUMORPH [Suspect]
     Active Substance: MORPHINE SULFATE
     Indication: PRODUCT USED FOR UNKNOWN INDICATION
     Route: 037
     Dates: end: 20141222

REACTIONS (1)
  - Implant site infection [None]

NARRATIVE: CASE EVENT DATE: 20141222
